FAERS Safety Report 8793829 (Version 3)
Quarter: 2012Q4

REPORT INFORMATION
  Report Type: Report from Study
  Country: JP (occurrence: JP)
  Receive Date: 20120918
  Receipt Date: 20121023
  Transmission Date: 20130627
  Serious: Yes (Death)
  Sender: FDA-Public Use
  Company Number: JP-MERCK-1209JPN006467

PATIENT
  Sex: Female

DRUGS (10)
  1. AROGLYCEM [Suspect]
     Indication: HYPOGLYCAEMIA
     Dosage: 30 mg, bid
     Route: 048
     Dates: start: 20120827, end: 20120911
  2. ARTIST [Concomitant]
     Indication: DOUBLE OUTLET RIGHT VENTRICLE
     Dosage: UNK UNK, qd
     Dates: start: 20120824
  3. ARTIST [Concomitant]
     Indication: PULMONARY VALVE STENOSIS
  4. INCREMIN [Concomitant]
     Indication: ANAEMIA NEONATAL
     Dosage: Divided dose frequency unknown, 6 ml qd
     Route: 048
     Dates: start: 20120824, end: 20120911
  5. CERCINE [Concomitant]
     Indication: LARYNGOMALACIA
     Dosage: divided dose frequency unknown, 2 ml qd
     Route: 048
     Dates: start: 20120824, end: 20120828
  6. CERCINE [Concomitant]
     Dosage: divided dose frequency unknown, 3 ml qd
     Route: 048
     Dates: start: 20120829, end: 20120911
  7. MUCODYNE [Concomitant]
     Indication: LARYNGOMALACIA
     Dosage: divided dose frequency unknown, 180 mg qd
     Route: 048
     Dates: start: 20120824, end: 20120911
  8. MUCOSOLVAN [Concomitant]
     Indication: LARYNGOMALACIA
     Dosage: divided dose frequency unknown, 5 mg qd
     Route: 048
     Dates: start: 20120824, end: 20120911
  9. ZOSYN [Concomitant]
     Indication: PNEUMONIA
     Dosage: divided dose frequency unknown, 675 mg qd
     Route: 042
     Dates: start: 20120901, end: 20120907
  10. BOSMIN (EPINEPHRINE) [Concomitant]
     Indication: CIRCULATORY COLLAPSE
     Dosage: divided dose frequency unknown, 1 ml qd
     Route: 042
     Dates: start: 20120911

REACTIONS (1)
  - Sepsis [Fatal]
